APPROVED DRUG PRODUCT: FLECAINIDE ACETATE
Active Ingredient: FLECAINIDE ACETATE
Strength: 100MG
Dosage Form/Route: TABLET;ORAL
Application: A076421 | Product #002 | TE Code: AB
Applicant: SUN PHARMACEUTICAL INDUSTRIES LTD
Approved: Mar 28, 2003 | RLD: No | RS: No | Type: RX